FAERS Safety Report 19514692 (Version 1)
Quarter: 2021Q3

REPORT INFORMATION
  Report Type: Spontaneous
  Country: DE (occurrence: DE)
  Receive Date: 20210709
  Receipt Date: 20210709
  Transmission Date: 20211014
  Serious: Yes (Other)
  Sender: FDA-Public Use
  Company Number: DE-ASTRAZENECA-2021A582472

PATIENT
  Age: 65 Year
  Sex: Female

DRUGS (4)
  1. OSIMERTINIB. [Suspect]
     Active Substance: OSIMERTINIB
     Indication: LUNG ADENOCARCINOMA
     Route: 048
  2. PREDNISOLONE. [Concomitant]
     Active Substance: PREDNISOLONE
     Indication: PNEUMONITIS
     Route: 065
  3. OSIMERTINIB. [Suspect]
     Active Substance: OSIMERTINIB
     Indication: LUNG ADENOCARCINOMA
     Dosage: ALTERNATING 80 MG AND 40 MG
     Route: 048
  4. OSIMERTINIB. [Suspect]
     Active Substance: OSIMERTINIB
     Indication: LUNG ADENOCARCINOMA
     Route: 048

REACTIONS (3)
  - Pulmonary toxicity [Recovered/Resolved]
  - Malignant neoplasm progression [Unknown]
  - Acquired gene mutation [Unknown]
